FAERS Safety Report 4465462-2 (Version None)
Quarter: 2004Q3

REPORT INFORMATION
  Report Type: 
  Country: None (occurrence: None)
  Receive Date: 20040929
  Receipt Date: 20040909
  Transmission Date: 20050211
  Serious: Yes (Hospitalization, Other)
  Sender: FDA-Public Use
  Company Number: US_0408104540

PATIENT
  Age: 42 Year
  Sex: Female
  Weight: 97 kg

DRUGS (12)
  1. ZYPREXA [Suspect]
     Indication: BIPOLAR DISORDER
     Dosage: 15 MG/1 AT BEDTIME
  2. HUMULIN 70/30 [Suspect]
     Indication: DIABETES MELLITUS NON-INSULIN-DEPENDENT
     Dosage: 110 U DAY
     Dates: start: 20001201
  3. LITHIUM [Concomitant]
  4. PRILOSEC (IMEPRAZOLE) [Concomitant]
  5. LEVOTHROID [Concomitant]
  6. AVAPRO [Concomitant]
  7. IRON SUPPLEMENT [Concomitant]
  8. PAXIL [Concomitant]
  9. LOTENSIN [Concomitant]
  10. DESOGESTREL W/ETHINYLESTRADIOL [Concomitant]
  11. BUSPAR [Concomitant]
  12. SARAFEM (FLUOXETINE) [Concomitant]

REACTIONS (60)
  - ANOXIC ENCEPHALOPATHY [None]
  - ASTHENIA [None]
  - BALANCE DISORDER [None]
  - BLOOD GLUCOSE INCREASED [None]
  - BLOOD PRESSURE INCREASED [None]
  - BLOOD SODIUM INCREASED [None]
  - BOWEL SOUNDS ABNORMAL [None]
  - CARDIAC DISORDER [None]
  - CARDIAC FUNCTION TEST ABNORMAL [None]
  - CARDIAC VENTRICULAR DISORDER [None]
  - COMA [None]
  - COUGH [None]
  - DEHYDRATION [None]
  - DEPRESSED LEVEL OF CONSCIOUSNESS [None]
  - DIABETES MELLITUS NON-INSULIN-DEPENDENT [None]
  - DIABETIC KETOACIDOSIS [None]
  - DISEASE RECURRENCE [None]
  - DISSEMINATED INTRAVASCULAR COAGULATION [None]
  - DRY MOUTH [None]
  - DYSKINESIA [None]
  - EAR INFECTION [None]
  - ELECTROCARDIOGRAM ST SEGMENT DEPRESSION [None]
  - ELECTROENCEPHALOGRAM ABNORMAL [None]
  - ELECTROLYTE IMBALANCE [None]
  - HYPOGLYCAEMIA [None]
  - HYPOTENSION [None]
  - HYPOTHYROIDISM [None]
  - HYPOVOLAEMIA [None]
  - IMPAIRED GASTRIC EMPTYING [None]
  - LACTIC ACIDOSIS [None]
  - LETHARGY [None]
  - LOW DENSITY LIPOPROTEIN INCREASED [None]
  - MASS [None]
  - MENOPAUSAL SYMPTOMS [None]
  - MENORRHAGIA [None]
  - OEDEMA [None]
  - OVERDOSE [None]
  - PANCREATIC CYST [None]
  - PANCREATITIS [None]
  - PERINEAL PAIN [None]
  - PHARYNGITIS [None]
  - POLLAKIURIA [None]
  - POSTNASAL DRIP [None]
  - PYREXIA [None]
  - RENAL FAILURE ACUTE [None]
  - RESPIRATORY FAILURE [None]
  - RHABDOMYOLYSIS [None]
  - SENSATION OF BLOCK IN EAR [None]
  - SEPSIS [None]
  - SHOCK [None]
  - SINOBRONCHITIS [None]
  - SINUS CONGESTION [None]
  - SINUS DISORDER [None]
  - SINUS TACHYCARDIA [None]
  - TACHYPNOEA [None]
  - THERAPEUTIC AGENT TOXICITY [None]
  - THIRST [None]
  - TRACHEITIS [None]
  - WEIGHT DECREASED [None]
  - WEIGHT INCREASED [None]
